FAERS Safety Report 8272972-9 (Version None)
Quarter: 2012Q2

REPORT INFORMATION
  Report Type: 
  Country: None (occurrence: None)
  Receive Date: 20120411
  Receipt Date: 20120402
  Transmission Date: 20120825
  Serious: Yes (Other)
  Sender: FDA-Public Use
  Company Number: US-ACCORD-013011

PATIENT
  Age: 87 Year
  Sex: Male

DRUGS (10)
  1. FUROSEMIDE [Concomitant]
  2. OMEPRAZOLE [Concomitant]
  3. ASPIRIN [Concomitant]
     Dosage: LOW DOSE
  4. DONEPEZIL HCL [Suspect]
     Dosage: AT BEDTIME
     Dates: start: 20110601, end: 20110801
  5. FLUTICASONE FUROATE [Concomitant]
     Route: 045
  6. CARVEDILOL [Concomitant]
  7. LORATADINE [Concomitant]
  8. SPIRONOLACTONE [Concomitant]
     Route: 048
  9. SIMVASTATIN [Concomitant]
  10. VITAMIN B-12 [Concomitant]
     Route: 048

REACTIONS (1)
  - POST-TRAUMATIC STRESS DISORDER [None]
